FAERS Safety Report 4339927-8 (Version None)
Quarter: 2004Q2

REPORT INFORMATION
  Report Type: 
  Country: None (occurrence: None)
  Receive Date: 20040416
  Receipt Date: 20040413
  Transmission Date: 20050107
  Serious: Yes (Other)
  Sender: FDA-Public Use
  Company Number: US-GLAXOSMITHKLINE-A0506923A

PATIENT
  Age: 4 Year
  Sex: Female

DRUGS (2)
  1. LAMICTAL [Suspect]
     Indication: EPILEPSY
     Dosage: 12.5MG TWICE PER DAY
     Route: 048
     Dates: start: 20030801
  2. TYLENOL [Suspect]

REACTIONS (5)
  - CONVULSION [None]
  - CRYING [None]
  - DRUG INTERACTION [None]
  - DYSPNOEA [None]
  - HALLUCINATION [None]
